FAERS Safety Report 18506955 (Version 3)
Quarter: 2021Q2

REPORT INFORMATION
  Report Type: Spontaneous
  Country: US (occurrence: US)
  Receive Date: 20201116
  Receipt Date: 20210503
  Transmission Date: 20210717
  Serious: Yes (Hospitalization, Other)
  Sender: FDA-Public Use
  Company Number: US-PFIZER INC-2020445433

PATIENT
  Age: 66 Year
  Sex: Female

DRUGS (1)
  1. XELJANZ XR [Suspect]
     Active Substance: TOFACITINIB CITRATE
     Dosage: 11 MG
     Dates: start: 202010

REACTIONS (7)
  - Psychiatric symptom [Unknown]
  - Pneumonia [Unknown]
  - Blister [Unknown]
  - Wound [Unknown]
  - Amnesia [Unknown]
  - Fluid retention [Unknown]
  - Peripheral swelling [Unknown]
